FAERS Safety Report 20742638 (Version 1)
Quarter: 2022Q2

REPORT INFORMATION
  Report Type: Spontaneous
  Country: US (occurrence: US)
  Receive Date: 20220424
  Receipt Date: 20220424
  Transmission Date: 20220721
  Serious: No
  Sender: FDA-Public Use
  Company Number: US-SA-SAC20220418000085

PATIENT
  Sex: Female

DRUGS (10)
  1. KEVZARA [Suspect]
     Active Substance: SARILUMAB
     Indication: Rheumatoid arthritis
     Dosage: 200 MG, QOW
     Route: 058
  2. CALCIUM [Concomitant]
     Active Substance: CALCIUM
  3. TIZANIDINE HYDROCHLORIDE [Concomitant]
     Active Substance: TIZANIDINE HYDROCHLORIDE
  4. FLAGYL ER [Concomitant]
     Active Substance: METRONIDAZOLE
  5. BACTRIM [Concomitant]
     Active Substance: SULFAMETHOXAZOLE\TRIMETHOPRIM
  6. PREDNISONE [Concomitant]
     Active Substance: PREDNISONE
  7. LEFLUNOMIDE [Concomitant]
     Active Substance: LEFLUNOMIDE
  8. LISINOPRIL [Concomitant]
     Active Substance: LISINOPRIL
  9. ZOCOR [Concomitant]
     Active Substance: SIMVASTATIN
  10. XELJANZ [Concomitant]
     Active Substance: TOFACITINIB CITRATE

REACTIONS (1)
  - Product dose omission issue [Not Recovered/Not Resolved]
